FAERS Safety Report 8046580-9 (Version None)
Quarter: 2012Q1

REPORT INFORMATION
  Report Type: 
  Country: None (occurrence: None)
  Receive Date: 20120113
  Receipt Date: 20120109
  Transmission Date: 20120608
  Serious: Yes (Life-Threatening, Other)
  Sender: FDA-Public Use
  Company Number: US-ASTRAZENECA-2012SE01829

PATIENT
  Age: 32 Year
  Sex: Male

DRUGS (1)
  1. SEROQUEL [Suspect]
     Route: 048

REACTIONS (7)
  - NERVOUSNESS [None]
  - HYPERHIDROSIS [None]
  - DRUG DOSE OMISSION [None]
  - SUICIDE ATTEMPT [None]
  - ANXIETY [None]
  - FEELING ABNORMAL [None]
  - SELF-INJURIOUS IDEATION [None]
